FAERS Safety Report 9895250 (Version 1)
Quarter: 2014Q1

REPORT INFORMATION
  Report Type: Spontaneous
  Country: US (occurrence: US)
  Receive Date: 20140213
  Receipt Date: 20140213
  Transmission Date: 20141002
  Serious: No
  Sender: FDA-Public Use
  Company Number: US-BRISTOL-MYERS SQUIBB COMPANY-17270166

PATIENT
  Age: 16 Year
  Sex: Female
  Weight: 56.1 kg

DRUGS (1)
  1. ORENCIA FOR INJ [Suspect]
     Indication: JUVENILE IDIOPATHIC ARTHRITIS
     Dosage: LAST DOSE: 28DEC2012
     Route: 042
     Dates: start: 201204

REACTIONS (1)
  - Treatment noncompliance [Unknown]
